FAERS Safety Report 11414894 (Version 1)
Quarter: 2015Q3

REPORT INFORMATION
  Report Type: Other
  Country: GB (occurrence: GB)
  Receive Date: 20150825
  Receipt Date: 20150825
  Transmission Date: 20151125
  Serious: Yes (Life-Threatening, Hospitalization)
  Sender: FDA-Public Use
  Company Number: GB-SUN PHARMACEUTICAL INDUSTRIES LTD-2015SUN01840

PATIENT
  Age: 25 Year
  Sex: Male

DRUGS (21)
  1. DEPAKOTE [Suspect]
     Active Substance: DIVALPROEX SODIUM
     Indication: PRODUCT USED FOR UNKNOWN INDICATION
     Dosage: 750 MG, BID
     Route: 048
  2. VANCOMYCIN [Concomitant]
     Active Substance: VANCOMYCIN
     Dosage: 1.5 MG, TID
  3. OLANZAPINE. [Suspect]
     Active Substance: OLANZAPINE
     Indication: PRODUCT USED FOR UNKNOWN INDICATION
     Dosage: 15 MG, DAILY
     Route: 065
  4. QUETIAPINE [Suspect]
     Active Substance: QUETIAPINE
     Indication: PERSONALITY DISORDER
     Dosage: 200 MG, BID
     Route: 065
  5. MEBEVERINE [Concomitant]
     Active Substance: MEBEVERINE
     Dosage: 135 MG, TID
  6. DALTEPARIN [Concomitant]
     Active Substance: DALTEPARIN
  7. VENLAFAXINE HYDROCHLORIDE 37.5MG TABLET [Suspect]
     Active Substance: VENLAFAXINE HYDROCHLORIDE
     Dosage: XL FORMULATION; 225 MG, EVERY MORNING
     Route: 065
  8. LOPERAMIDE [Concomitant]
     Active Substance: LOPERAMIDE
     Dosage: 2 MG, TID
  9. BECLOMETASONE [Concomitant]
     Active Substance: BECLOMETHASONE DIPROPIONATE
     Dosage: INHALER
  10. NALOXONE [Concomitant]
     Active Substance: NALOXONE
  11. CETIRIZINE [Concomitant]
     Active Substance: CETIRIZINE HYDROCHLORIDE
  12. VENLAFAXINE HYDROCHLORIDE 37.5MG TABLET [Suspect]
     Active Substance: VENLAFAXINE HYDROCHLORIDE
     Indication: PRODUCT USED FOR UNKNOWN INDICATION
     Dosage: SLOW RELEASE; 75 MG, EVERY MORNING
     Route: 065
  13. ACETYLCYSTEINE. [Concomitant]
     Active Substance: ACETYLCYSTEINE
     Dosage: 600 MG, BID
  14. DULOXETINE. [Suspect]
     Active Substance: DULOXETINE
     Indication: PRODUCT USED FOR UNKNOWN INDICATION
     Dosage: 60 MG, EVERY MORNING
     Route: 065
  15. SALBUTAMOL [Concomitant]
     Active Substance: ALBUTEROL
  16. CLOPIXOL [Suspect]
     Active Substance: ZUCLOPENTHIXOL ACETATE
     Indication: PERSONALITY DISORDER
     Dosage: 10 MG, TID
     Route: 065
  17. MORPHINE [Concomitant]
     Active Substance: MORPHINE
  18. PARACETAMOL [Concomitant]
     Active Substance: ACETAMINOPHEN
     Dosage: 1 G, QID
  19. GENTAMICIN. [Concomitant]
     Active Substance: GENTAMICIN
     Dosage: 420 MG, DAILY
  20. METRONIDAZOLE. [Concomitant]
     Active Substance: METRONIDAZOLE
     Dosage: 500 MG, TID
  21. HYOSCINE [Concomitant]
     Active Substance: SCOPOLAMINE
     Dosage: PRN

REACTIONS (2)
  - Myositis [Not Recovered/Not Resolved]
  - Rhabdomyolysis [Not Recovered/Not Resolved]

NARRATIVE: CASE EVENT DATE: 20150723
